FAERS Safety Report 12381845 (Version 1)
Quarter: 2016Q2

REPORT INFORMATION
  Report Type: Spontaneous
  Country: US (occurrence: US)
  Receive Date: 20160518
  Receipt Date: 20160518
  Transmission Date: 20160815
  Serious: No
  Sender: FDA-Public Use
  Company Number: US-EISAI MEDICAL RESEARCH-EC-2016-016756

PATIENT
  Age: 84 Year
  Sex: Female
  Weight: 50.9 kg

DRUGS (4)
  1. XGEVA [Concomitant]
     Active Substance: DENOSUMAB
     Indication: BREAST CANCER RECURRENT
     Dosage: UNKNOWN
     Dates: start: 2015
  2. ACIPHEX [Suspect]
     Active Substance: RABEPRAZOLE SODIUM
     Indication: DYSPEPSIA
     Dosage: UNKNOWN
     Route: 048
     Dates: start: 201603, end: 201604
  3. DICLOFENAC/MISOPROSTOL [Concomitant]
     Indication: ARTHRITIS
     Dosage: 50 MG/0.2 TB
     Route: 048
     Dates: start: 2006
  4. FASLODEX [Concomitant]
     Active Substance: FULVESTRANT
     Indication: BREAST CANCER RECURRENT
     Dosage: UNKNOWN
     Dates: start: 2015

REACTIONS (1)
  - Dysgeusia [Not Recovered/Not Resolved]

NARRATIVE: CASE EVENT DATE: 201603
